FAERS Safety Report 7054618-0 (Version None)
Quarter: 2010Q4

REPORT INFORMATION
  Report Type: 
  Country: None (occurrence: None)
  Receive Date: 20101015
  Receipt Date: 20100908
  Transmission Date: 20110411
  Serious: Yes (Life-Threatening)
  Sender: FDA-Public Use
  Company Number: 10-343

PATIENT
  Age: 64 Year
  Sex: Female
  Weight: 108.8633 kg

DRUGS (3)
  1. LOPERAMIDE [Suspect]
     Dosage: 4 MG ORAL/SOME INHALED
     Route: 048
     Dates: start: 20100826
  2. NORVASC [Concomitant]
  3. AVANDIA [Concomitant]

REACTIONS (3)
  - BURN OESOPHAGEAL [None]
  - BURN OF INTERNAL ORGANS [None]
  - PRODUCT SOLUBILITY ABNORMAL [None]
